FAERS Safety Report 6437805-1 (Version None)
Quarter: 2009Q4

REPORT INFORMATION
  Report Type: 
  Country: None (occurrence: None)
  Receive Date: 20091112
  Receipt Date: 20091104
  Transmission Date: 20100525
  Serious: Yes (Other)
  Sender: FDA-Public Use
  Company Number: US-ABBOTT-09P-163-0606746-00

PATIENT
  Sex: Female

DRUGS (1)
  1. ULTANE [Suspect]
     Indication: ANAESTHESIA
     Dates: start: 20091030, end: 20091030

REACTIONS (1)
  - DYSKINESIA [None]
